FAERS Safety Report 9924551 (Version 2)
Quarter: 2014Q1

REPORT INFORMATION
  Report Type: Spontaneous
  Country: US (occurrence: US)
  Receive Date: 20140226
  Receipt Date: 20140324
  Transmission Date: 20141002
  Serious: No
  Sender: FDA-Public Use
  Company Number: US-PFIZER INC-2014054599

PATIENT
  Sex: Male

DRUGS (1)
  1. EFFEXOR XR [Suspect]
     Dosage: UNK

REACTIONS (5)
  - Arthritis [Unknown]
  - Feeling abnormal [Unknown]
  - Anger [Unknown]
  - Emotional disorder [Unknown]
  - Vertigo [Unknown]
